FAERS Safety Report 22156029 (Version 1)
Quarter: 2023Q1

REPORT INFORMATION
  Report Type: Spontaneous
  Country: JP (occurrence: JP)
  Receive Date: 20230330
  Receipt Date: 20230330
  Transmission Date: 20230418
  Serious: Yes (Other)
  Sender: FDA-Public Use
  Company Number: JP-AMGEN-JPNSP2023052005

PATIENT
  Age: 51 Year
  Sex: Male

DRUGS (4)
  1. APREMILAST [Suspect]
     Active Substance: APREMILAST
     Indication: Psoriasis
     Dosage: UNK
     Route: 048
  2. ADALIMUMAB [Suspect]
     Active Substance: ADALIMUMAB
     Indication: Psoriasis
     Dosage: UNK
     Route: 065
  3. BETAMETHASONE BUTYRATE PROPIONATE;MAXACALCITOL [Concomitant]
     Indication: Psoriasis
     Dosage: UNK
     Route: 061
  4. ETRETINATE [Concomitant]
     Active Substance: ETRETINATE
     Indication: Psoriasis
     Dosage: UNK
     Route: 065

REACTIONS (4)
  - Pemphigus [Unknown]
  - Pemphigoid [Recovered/Resolved]
  - Pigmentation disorder [Unknown]
  - Therapy non-responder [Unknown]
